FAERS Safety Report 9382796 (Version 2)
Quarter: 2013Q3

REPORT INFORMATION
  Report Type: Spontaneous
  Country: US (occurrence: US)
  Receive Date: 20130703
  Receipt Date: 20130712
  Transmission Date: 20140515
  Serious: Yes (Other)
  Sender: FDA-Public Use
  Company Number: US-UCBSA-090318

PATIENT
  Age: 58 Year
  Sex: Female

DRUGS (3)
  1. VIMPAT [Suspect]
     Indication: CONVULSION
     Dosage: EXPIRATION DATE-??/JAN/2016
     Dates: start: 2011
  2. DEPAKOTE [Concomitant]
     Indication: CONVULSION
     Dosage: DAILY 500 MG
  3. ATIVAN [Concomitant]
     Indication: CONVULSION
     Dosage: 0.5 MG

REACTIONS (1)
  - Squamous cell carcinoma [Unknown]
